FAERS Safety Report 20474721 (Version 1)
Quarter: 2022Q1

REPORT INFORMATION
  Report Type: Spontaneous
  Country: US (occurrence: US)
  Receive Date: 20220215
  Receipt Date: 20220215
  Transmission Date: 20220423
  Serious: No
  Sender: FDA-Public Use
  Company Number: US-PFIZER INC-2021543334

PATIENT
  Age: 27 Year
  Sex: Female

DRUGS (6)
  1. ESTRADIOL [Suspect]
     Active Substance: ESTRADIOL
     Dosage: UNK
  2. NEURONTIN [Suspect]
     Active Substance: GABAPENTIN
     Dosage: UNK
  3. AMITIZA [Suspect]
     Active Substance: LUBIPROSTONE
     Dosage: UNK
  4. CARBAMAZEPINE [Suspect]
     Active Substance: CARBAMAZEPINE
     Dosage: UNK
  5. LATUDA [Suspect]
     Active Substance: LURASIDONE HYDROCHLORIDE
     Dosage: UNK
  6. TRAZODONE [Suspect]
     Active Substance: TRAZODONE HYDROCHLORIDE
     Dosage: UNK

REACTIONS (2)
  - Mental disorder [Unknown]
  - Social problem [Unknown]
